FAERS Safety Report 5131044-2 (Version None)
Quarter: 2006Q4

REPORT INFORMATION
  Report Type: 
  Country: None (occurrence: None)
  Receive Date: 20061019
  Receipt Date: 20061012
  Transmission Date: 20070319
  Serious: Yes (Hospitalization)
  Sender: FDA-Public Use
  Company Number: US-ROXANE LABORATORIES, INC-2006-BP-11959RO

PATIENT
  Sex: Male
  Weight: 82 kg

DRUGS (6)
  1. PREDNISOLONE [Suspect]
     Indication: DEMYELINATING POLYNEUROPATHY
     Dosage: 60 MG DAILY
     Route: 048
     Dates: start: 20050901
  2. VIRAMUNE [Concomitant]
     Indication: ACQUIRED IMMUNODEFICIENCY SYNDROME
     Route: 048
     Dates: start: 19990101
  3. ACYCLOVIR [Concomitant]
     Indication: ACQUIRED IMMUNODEFICIENCY SYNDROME
     Route: 048
     Dates: start: 19990101
  4. MORPHINE [Concomitant]
     Indication: PAIN
  5. MEPERIDINE HCL [Concomitant]
     Indication: PAIN
  6. VALIUM [Concomitant]
     Indication: PAIN
     Route: 048

REACTIONS (8)
  - ABDOMINAL DISTENSION [None]
  - ACTIVITIES OF DAILY LIVING IMPAIRED [None]
  - AGEUSIA [None]
  - DELIRIUM [None]
  - LIPOHYPERTROPHY [None]
  - OEDEMA [None]
  - PULMONARY EMBOLISM [None]
  - RENAL FAILURE [None]
